FAERS Safety Report 12946179 (Version 1)
Quarter: 2016Q4

REPORT INFORMATION
  Report Type: Report from Study
  Country: US (occurrence: US)
  Receive Date: 20161115
  Receipt Date: 20161115
  Transmission Date: 20170207
  Serious: Yes (Death, Other)
  Sender: FDA-Public Use
  Company Number: US-EMD SERONO-E2B_80053043

PATIENT
  Age: 67 Year
  Sex: Male

DRUGS (1)
  1. REBIF [Suspect]
     Active Substance: INTERFERON BETA-1A
     Indication: PRODUCT USED FOR UNKNOWN INDICATION
     Route: 058
     Dates: start: 20141223

REACTIONS (3)
  - Death [Fatal]
  - Unresponsive to stimuli [Unknown]
  - Fall [Unknown]

NARRATIVE: CASE EVENT DATE: 20161010
